FAERS Safety Report 15252942 (Version 1)
Quarter: 2018Q3

REPORT INFORMATION
  Report Type: Spontaneous
  Country: US (occurrence: US)
  Receive Date: 20180807
  Receipt Date: 20180807
  Transmission Date: 20181010
  Serious: No
  Sender: FDA-Public Use
  Company Number: US-RADIUS HEALTH INC.-2018US001214

PATIENT
  Age: 63 Year
  Sex: Female

DRUGS (1)
  1. TYMLOS [Suspect]
     Active Substance: ABALOPARATIDE
     Indication: OSTEOPOROSIS POSTMENOPAUSAL
     Dosage: 80 MCG, QD
     Route: 058
     Dates: start: 20180622

REACTIONS (5)
  - Injection site pain [Unknown]
  - Constipation [Unknown]
  - Product use complaint [Unknown]
  - Renal cyst [Unknown]
  - Nausea [Unknown]

NARRATIVE: CASE EVENT DATE: 20180625
